FAERS Safety Report 6721756-9 (Version None)
Quarter: 2010Q2

REPORT INFORMATION
  Report Type: 
  Country: None (occurrence: None)
  Receive Date: 20100510
  Receipt Date: 20100423
  Transmission Date: 20101027
  Serious: Yes (Hospitalization, Other)
  Sender: FDA-Public Use
  Company Number: 2010S1000108

PATIENT
  Age: 59 Year
  Sex: Female

DRUGS (12)
  1. PHOSPHOSODA FLAVOR NOT SPECIFIED [Suspect]
     Indication: COLONOSCOPY
     Dosage: 90 ML;TOTAL;PO
     Route: 048
     Dates: start: 20081023, end: 20081024
  2. PHOSPHOSODA FLAVOR NOT SPECIFIED [Suspect]
     Indication: OESOPHAGOGASTRODUODENOSCOPY
     Dosage: 90 ML;TOTAL;PO
     Route: 048
     Dates: start: 20081023, end: 20081024
  3. IRON [Concomitant]
  4. AMLODIPINE [Concomitant]
  5. METOPROLOL TARTRATE [Concomitant]
  6. PREMARIN [Concomitant]
  7. OMEPRAZOLE [Concomitant]
  8. DARIFENACIN [Concomitant]
  9. PHENERGAN HCL [Concomitant]
  10. FLAGYL [Concomitant]
  11. AVELOX /01453201/ [Concomitant]
  12. VICODIN [Concomitant]

REACTIONS (9)
  - ABDOMINAL PAIN LOWER [None]
  - ALTERED STATE OF CONSCIOUSNESS [None]
  - DEHYDRATION [None]
  - DIARRHOEA [None]
  - LETHARGY [None]
  - NAUSEA [None]
  - ORAL DISORDER [None]
  - RENAL FAILURE ACUTE [None]
  - VOMITING [None]
